FAERS Safety Report 7785535-6 (Version None)
Quarter: 2011Q3

REPORT INFORMATION
  Report Type: 
  Country: None (occurrence: None)
  Receive Date: 20110929
  Receipt Date: 20110922
  Transmission Date: 20111222
  Serious: Yes (Death, Other)
  Sender: FDA-Public Use
  Company Number: US-AMGEN-USASP2010007151

PATIENT
  Age: 23 Year
  Sex: Male
  Weight: 80 kg

DRUGS (2)
  1. IMMUNOGLOBULINS [Concomitant]
     Indication: IDIOPATHIC THROMBOCYTOPENIC PURPURA
     Dosage: UNK
     Dates: start: 20100608, end: 20100610
  2. NPLATE [Suspect]
     Indication: IDIOPATHIC THROMBOCYTOPENIC PURPURA
     Dosage: 400 MUG, QWK
     Route: 058
     Dates: start: 20100712, end: 20101019

REACTIONS (3)
  - DRUG INEFFECTIVE [None]
  - THROMBOCYTOPENIA [None]
  - DEATH [None]
